FAERS Safety Report 8525447-3 (Version None)
Quarter: 2012Q3

REPORT INFORMATION
  Report Type: 
  Country: None (occurrence: None)
  Receive Date: 20120710
  Receipt Date: 20120626
  Transmission Date: 20120928
  Serious: Yes (Hospitalization)
  Sender: FDA-Public Use
  Company Number: 1332111

PATIENT
  Age: 65 Year
  Sex: Female

DRUGS (3)
  1. VANCOMYCIN HYDROCHLORIDE [Suspect]
     Indication: PYREXIA
     Dosage: 2 GRAM, INTRAVENOUS
     Route: 042
     Dates: start: 20120412, end: 20120501
  2. PIPERACILLIN AND TAZOBACTAM [Suspect]
     Indication: PYREXIA
     Dosage: 13.5 GRAM, INTRAVENOUS
     Route: 042
     Dates: start: 20120409, end: 20120426
  3. ZOVIRAX [Suspect]
     Indication: ANTIBIOTIC PROPHYLAXIS
     Dosage: 1.8 GRAM, INTRAVENOUS
     Route: 042
     Dates: start: 20120411, end: 20120502

REACTIONS (1)
  - RASH MACULO-PAPULAR [None]
